FAERS Safety Report 15222661 (Version 1)
Quarter: 2018Q3

REPORT INFORMATION
  Report Type: Spontaneous
  Country: US (occurrence: US)
  Receive Date: 20180705
  Receipt Date: 20180705
  Transmission Date: 20181010
  Serious: No
  Sender: FDA-Public Use
  Company Number: None

PATIENT
  Age: 36 Year
  Sex: Male
  Weight: 134.1 kg

DRUGS (5)
  1. B12?SOFTFELS [Concomitant]
  2. D3?SOFTGELS [Concomitant]
  3. FLUOXETINE 40MG CAPSULES [Suspect]
     Active Substance: FLUOXETINE HYDROCHLORIDE
     Indication: DEPRESSION
     Dosage: ?          QUANTITY:1 CAPSULE(S);?
     Route: 048
     Dates: start: 20171227
  4. LAMOTRIGINE. [Concomitant]
     Active Substance: LAMOTRIGINE
  5. FLUOXETINE [Concomitant]
     Active Substance: FLUOXETINE HYDROCHLORIDE

REACTIONS (2)
  - Product substitution issue [None]
  - Dyspepsia [None]
